FAERS Safety Report 4760578-5 (Version None)
Quarter: 2005Q3

REPORT INFORMATION
  Report Type: 
  Country: None (occurrence: None)
  Receive Date: 20050902
  Receipt Date: 20050816
  Transmission Date: 20060218
  Serious: Yes (Hospitalization)
  Sender: FDA-Public Use
  Company Number: US-MERCK-0508USA03002

PATIENT
  Age: 39 Year
  Sex: Male
  Weight: 91 kg

DRUGS (10)
  1. VIOXX [Suspect]
     Indication: ARTHRITIS
     Route: 048
     Dates: start: 19990101, end: 20040101
  2. GABAPENTIN [Concomitant]
     Indication: NEURALGIA
     Route: 065
  3. FLUOXETINE [Concomitant]
     Indication: DEPRESSION
     Route: 065
  4. AMITRIPTYLINE HYDROCHLORIDE [Concomitant]
     Indication: DEPRESSION
     Route: 065
     Dates: start: 19970101
  5. ACETAMINOPHEN AND HYDROCODONE BITARTRATE [Concomitant]
     Indication: PAIN
     Route: 065
  6. PREVACID [Concomitant]
     Indication: DYSPEPSIA
     Route: 065
  7. TIZANIDINE HYDROCHLORIDE [Concomitant]
     Indication: MUSCLE SPASMS
     Route: 065
  8. CHLORZOXAZONE [Concomitant]
     Route: 065
  9. PROZAC [Concomitant]
     Indication: DEPRESSION
     Route: 065
     Dates: start: 19970101
  10. PAXIL [Concomitant]
     Route: 065
     Dates: start: 19970101

REACTIONS (3)
  - HYPERTENSION [None]
  - LUNG DISORDER [None]
  - MYOCARDIAL INFARCTION [None]
